FAERS Safety Report 9292091 (Version 1)
Quarter: 2012Q4

REPORT INFORMATION
  Report Type: Spontaneous
  Country: US (occurrence: None)
  Receive Date: 20121005
  Receipt Date: 20121005
  Transmission Date: 20130627
  Serious: Yes (Other)
  Sender: FDA-Public Use
  Company Number: AUR-APL-2012-04215

PATIENT
  Age: 63 Year
  Sex: Female
  Weight: 59.86 kg

DRUGS (9)
  1. METFORMIN (METFORMIN) [Suspect]
     Indication: DIABETES
  2. METFORMIN (METFORMIN) [Suspect]
     Indication: DIABETES
  3. GLIBENCLAMIDE [Suspect]
     Indication: DIABETES
  4. GLIBENCLAMIDE [Suspect]
     Indication: DIABETES
  5. LIPITOR (ATORVASTATIN CALCIUM) [Suspect]
     Indication: BLOOD CHOLESTEROL INCREASED
     Dates: start: 1999
  6. ULORIC (FEBUXOSTAT) [Suspect]
  7. PERCOCET (TYLOX (00446701) [Concomitant]
  8. NEXIUM (ESOMEPRAZOLE MAGNESIUM) [Concomitant]
  9. METOPROLOL (METOPROLOL) [Concomitant]

REACTIONS (3)
  - Basal cell carcinoma [None]
  - Blood glucose increased [None]
  - Blood uric acid increased [None]
